FAERS Safety Report 7564439-8 (Version None)
Quarter: 2011Q2

REPORT INFORMATION
  Report Type: 
  Country: None (occurrence: None)
  Receive Date: 20110622
  Receipt Date: 20110610
  Transmission Date: 20111010
  Serious: Yes (Other)
  Sender: FDA-Public Use
  Company Number: PHHY2011US45742

PATIENT
  Age: 66 Year
  Sex: Female
  Weight: 54.5 kg

DRUGS (3)
  1. ZOMETA [Suspect]
     Indication: METASTASES TO BONE
     Dosage: 4 MG, ONCE IN 3 WEEKS
  2. ZOMETA [Suspect]
     Dosage: 4 MG, EVERY 28 DAYS
     Route: 042
     Dates: start: 20091021, end: 20110412
  3. ZOMETA [Suspect]
     Dosage: 4 MG, ONCE IN 4 WEEKS

REACTIONS (7)
  - OSTEITIS [None]
  - METASTASES TO BONE [None]
  - OSTEONECROSIS OF JAW [None]
  - METASTASES TO LUNG [None]
  - ORAL DISORDER [None]
  - ORAL MUCOSAL ERYTHEMA [None]
  - METASTASES TO LIVER [None]
